FAERS Safety Report 5920276-9 (Version None)
Quarter: 2008Q4

REPORT INFORMATION
  Report Type: 
  Country: None (occurrence: None)
  Receive Date: 20081016
  Receipt Date: 20081001
  Transmission Date: 20090506
  Serious: Yes (Other)
  Sender: FDA-Public Use
  Company Number: PHHY2008BR23578

PATIENT
  Sex: Male

DRUGS (1)
  1. EXFORGE [Suspect]
     Dosage: 320/5 MG

REACTIONS (3)
  - DRUG DEPENDENCE [None]
  - HEADACHE [None]
  - TREATMENT NONCOMPLIANCE [None]
